FAERS Safety Report 10055715 (Version 1)
Quarter: 2014Q2

REPORT INFORMATION
  Report Type: Spontaneous
  Country: US (occurrence: None)
  Receive Date: 20140402
  Receipt Date: 20140402
  Transmission Date: 20141212
  Serious: Yes (Disabling, Other)
  Sender: FDA-Public Use
  Company Number: None

PATIENT
  Age: 57 Year
  Sex: Female

DRUGS (2)
  1. LASTACAFT [Suspect]
     Indication: LACRIMATION INCREASED
     Dosage: 1 DROP, ONCE DAILY, INTO THE EYE
     Dates: start: 20140218, end: 20140219
  2. LASTACAFT [Suspect]
     Indication: EYE ALLERGY
     Dosage: 1 DROP, ONCE DAILY, INTO THE EYE
     Dates: start: 20140218, end: 20140219

REACTIONS (14)
  - Instillation site burn [None]
  - Eye burns [None]
  - Diplopia [None]
  - Vision blurred [None]
  - Headache [None]
  - Photophobia [None]
  - Eye pain [None]
  - Foreign body sensation in eyes [None]
  - Impaired driving ability [None]
  - Depression [None]
  - Anxiety [None]
  - Epistaxis [None]
  - Activities of daily living impaired [None]
  - Eye injury [None]
